FAERS Safety Report 7585307-1 (Version None)
Quarter: 2011Q2

REPORT INFORMATION
  Report Type: 
  Country: None (occurrence: None)
  Receive Date: 20110628
  Receipt Date: 20110628
  Transmission Date: 20111010
  Serious: Yes (Other)
  Sender: FDA-Public Use
  Company Number: None

PATIENT
  Sex: Male
  Weight: 81.6 kg

DRUGS (1)
  1. ASENAPINE 5MG SCHERING-PLOUGH [Suspect]
     Indication: BIPOLAR DISORDER
     Dosage: 10 BID SL
     Route: 060
     Dates: start: 20110616, end: 20110618

REACTIONS (1)
  - SWOLLEN TONGUE [None]
